FAERS Safety Report 9556470 (Version 1)
Quarter: 2013Q3

REPORT INFORMATION
  Report Type: Spontaneous
  Country: US (occurrence: None)
  Receive Date: 20130909
  Receipt Date: 20130909
  Transmission Date: 20140515
  Serious: Yes (Hospitalization)
  Sender: FDA-Public Use
  Company Number: 374572

PATIENT
  Age: 43 Year
  Sex: Male

DRUGS (1)
  1. VICTOZA [Suspect]
     Route: 058
     Dates: end: 201303

REACTIONS (1)
  - Pancreatitis acute [None]
